FAERS Safety Report 24234826 (Version 3)
Quarter: 2024Q3

REPORT INFORMATION
  Report Type: Spontaneous
  Country: US (occurrence: US)
  Receive Date: 20240821
  Receipt Date: 20240913
  Transmission Date: 20241017
  Serious: No
  Sender: AMGEN
  Company Number: US-AMGEN-USASP2024162427

PATIENT
  Age: 74 Year
  Sex: Female
  Weight: 69.1 kg

DRUGS (2)
  1. NEULASTA [Suspect]
     Active Substance: PEGFILGRASTIM
     Indication: Non-small cell lung cancer
     Dosage: UNK
     Route: 065
  2. NEULASTA [Suspect]
     Active Substance: PEGFILGRASTIM
     Dosage: UNK
     Route: 065

REACTIONS (2)
  - Device adhesion issue [Unknown]
  - Dry skin [Unknown]

NARRATIVE: CASE EVENT DATE: 20240801
